FAERS Safety Report 11878039 (Version 1)
Quarter: 2015Q4

REPORT INFORMATION
  Report Type: Spontaneous
  Country: US (occurrence: None)
  Receive Date: 20151229
  Receipt Date: 20151229
  Transmission Date: 20160305
  Serious: No
  Sender: FDA-Public Use
  Company Number: None

PATIENT
  Age: 55 Year
  Sex: Female
  Weight: 72.12 kg

DRUGS (9)
  1. PLAVIX [Concomitant]
     Active Substance: CLOPIDOGREL BISULFATE
  2. B6 [Concomitant]
     Active Substance: PYRIDOXINE HYDROCHLORIDE
  3. HCTZ [Concomitant]
     Active Substance: HYDROCHLOROTHIAZIDE
  4. D3 [Concomitant]
     Active Substance: 25-HYDROXYCHOLECALCIFEROL, 5-TRANS-
  5. MYRBETRIQ [Suspect]
     Active Substance: MIRABEGRON
     Indication: MICTURITION URGENCY
     Route: 048
     Dates: start: 20151022, end: 20151123
  6. URICIT K [Concomitant]
  7. LIPITOR [Concomitant]
     Active Substance: ATORVASTATIN CALCIUM
  8. ALLOPURINOL. [Concomitant]
     Active Substance: ALLOPURINOL
  9. LYSINOPROL [Concomitant]

REACTIONS (4)
  - Blood pressure increased [None]
  - Arthralgia [None]
  - Fatigue [None]
  - Muscular weakness [None]

NARRATIVE: CASE EVENT DATE: 20151123
